FAERS Safety Report 23898043 (Version 11)
Quarter: 2025Q1

REPORT INFORMATION
  Report Type: Spontaneous
  Country: US (occurrence: US)
  Receive Date: 20240524
  Receipt Date: 20250328
  Transmission Date: 20250409
  Serious: Yes (Other)
  Sender: SANOFI AVENTIS
  Company Number: US-SA-SAC20240522000808

PATIENT
  Age: 36 Year
  Sex: Female
  Weight: 67.13 kg

DRUGS (46)
  1. DUPIXENT [Suspect]
     Active Substance: DUPILUMAB
     Indication: Asthma
     Dosage: 300 MG, QOW
     Route: 058
  2. DUPIXENT [Suspect]
     Active Substance: DUPILUMAB
     Indication: Nasal polyps
  3. DUPIXENT [Suspect]
     Active Substance: DUPILUMAB
     Indication: Asthma
     Dosage: 300 MG, QOW
     Route: 058
  4. DUPIXENT [Suspect]
     Active Substance: DUPILUMAB
     Indication: Nasal polyps
  5. GAMUNEX [Concomitant]
     Active Substance: HUMAN IMMUNOGLOBULIN G
  6. LIDOCAINE [Concomitant]
     Active Substance: LIDOCAINE
  7. EPINEPHRINE [Concomitant]
     Active Substance: EPINEPHRINE
  8. DIPHENHYDRAMINE HYDROCHLORIDE [Concomitant]
     Active Substance: DIPHENHYDRAMINE HYDROCHLORIDE
  9. ACETAMINOPHEN [Concomitant]
     Active Substance: ACETAMINOPHEN
  10. FLUVOXAMINE MALEATE [Concomitant]
     Active Substance: FLUVOXAMINE MALEATE
  11. PEPCID AC [Concomitant]
     Active Substance: FAMOTIDINE
  12. QNASL [Concomitant]
     Active Substance: BECLOMETHASONE DIPROPIONATE
  13. UBRELVY [Concomitant]
     Active Substance: UBROGEPANT
  14. DIETARY SUPPLEMENT [Concomitant]
     Active Substance: DIETARY SUPPLEMENT
  15. FLUDROCORTISONE ACETATE [Concomitant]
     Active Substance: FLUDROCORTISONE ACETATE
  16. SODIUM CHLORIDE [Concomitant]
     Active Substance: SODIUM CHLORIDE
  17. XOPENEX HFA [Concomitant]
     Active Substance: LEVALBUTEROL TARTRATE
  18. SYMBICORT [Concomitant]
     Active Substance: BUDESONIDE\FORMOTEROL FUMARATE DIHYDRATE
     Indication: Asthma
  19. LEVALBUTEROL HYDROCHLORIDE [Concomitant]
     Active Substance: LEVALBUTEROL HYDROCHLORIDE
  20. SPIRIVA RESPIMAT [Concomitant]
     Active Substance: TIOTROPIUM BROMIDE
  21. CORLANOR [Concomitant]
     Active Substance: IVABRADINE HYDROCHLORIDE
  22. MONTELUKAST SODIUM [Concomitant]
     Active Substance: MONTELUKAST SODIUM
     Indication: Asthma
  23. TOPIRAMATE [Concomitant]
     Active Substance: TOPIRAMATE
  24. MIDODRINE HYDROCHLORIDE [Concomitant]
     Active Substance: MIDODRINE HYDROCHLORIDE
  25. MAGNESIUM [Concomitant]
     Active Substance: MAGNESIUM
  26. DEXTROSE [Concomitant]
     Active Substance: DEXTROSE MONOHYDRATE
  27. VITAMIN B COMPLEX [Concomitant]
     Active Substance: CYANOCOBALAMIN\DEXPANTHENOL\NIACINAMIDE\PYRIDOXINE HYDROCHLORIDE\RIBOFLAVIN 5^-PHOSPHATE SODIUM\THIA
  28. ZYRTEC [Concomitant]
     Active Substance: CETIRIZINE HYDROCHLORIDE
  29. EPINEPHRINE\LIDOCAINE HYDROCHLORIDE [Concomitant]
     Active Substance: EPINEPHRINE\LIDOCAINE HYDROCHLORIDE
  30. TOBRAMYCIN [Concomitant]
     Active Substance: TOBRAMYCIN
  31. NALTREXONE [Concomitant]
     Active Substance: NALTREXONE
  32. KETOTIFEN [Concomitant]
     Active Substance: KETOTIFEN
  33. EQUILIBRANT [Concomitant]
  34. BUDESONIDE [Concomitant]
     Active Substance: BUDESONIDE
  35. CEPHALEXIN [Concomitant]
     Active Substance: CEPHALEXIN
  36. DIPHENHYDRAMINE [Concomitant]
     Active Substance: DIPHENHYDRAMINE
  37. FLUVOXAMINE [Concomitant]
     Active Substance: FLUVOXAMINE
  38. FLUDROCORTISONE [Concomitant]
     Active Substance: FLUDROCORTISONE
  39. TRELEGY ELLIPTA [Concomitant]
     Active Substance: FLUTICASONE FUROATE\UMECLIDINIUM BROMIDE\VILANTEROL TRIFENATATE
  40. OREGANO LEAF OIL [Concomitant]
     Active Substance: OREGANO LEAF OIL
  41. ATORVASTATIN CALCIUM [Concomitant]
     Active Substance: ATORVASTATIN CALCIUM
  42. COENZYME Q10 [Concomitant]
     Active Substance: DIETARY SUPPLEMENT\UBIDECARENONE
  43. PREDNISONE [Concomitant]
     Active Substance: PREDNISONE
  44. AZELASTINE HYDROCHLORIDE [Concomitant]
     Active Substance: AZELASTINE HYDROCHLORIDE
  45. THYROID [Concomitant]
     Active Substance: LEVOTHYROXINE\LIOTHYRONINE
  46. NEXLETOL [Concomitant]
     Active Substance: BEMPEDOIC ACID

REACTIONS (19)
  - Mast cell activation syndrome [Unknown]
  - Fatigue [Unknown]
  - Chronic sinusitis [Unknown]
  - Bradycardia [Unknown]
  - Chest discomfort [Unknown]
  - Generalised oedema [Unknown]
  - Infusion site extravasation [Unknown]
  - Nausea [Unknown]
  - Bronchitis [Recovering/Resolving]
  - Pyrexia [Recovering/Resolving]
  - Pain in jaw [Unknown]
  - Food allergy [Unknown]
  - Migraine [Unknown]
  - Neck pain [Unknown]
  - Headache [Recovering/Resolving]
  - Swelling face [Unknown]
  - Asthma [Recovering/Resolving]
  - Rash [Unknown]
  - Arthralgia [Unknown]

NARRATIVE: CASE EVENT DATE: 20240517
